FAERS Safety Report 5722351-0 (Version None)
Quarter: 2008Q2

REPORT INFORMATION
  Report Type: 
  Country: None (occurrence: None)
  Receive Date: 20080429
  Receipt Date: 20071105
  Transmission Date: 20081010
  Serious: No
  Sender: FDA-Public Use
  Company Number: US-ASTRAZENECA-2007UW25689

PATIENT
  Sex: Male

DRUGS (2)
  1. NEXIUM [Suspect]
     Indication: REFLUX OESOPHAGITIS
     Dosage: ONE NEXIUM
     Route: 048
  2. NEXIUM [Suspect]
     Dosage: TWO NEXIUM
     Route: 048

REACTIONS (2)
  - DRUG INEFFECTIVE [None]
  - VOMITING [None]
